FAERS Safety Report 11220188 (Version 3)
Quarter: 2015Q3

REPORT INFORMATION
  Report Type: Report from Study
  Country: KR (occurrence: KR)
  Receive Date: 20150625
  Receipt Date: 20150709
  Transmission Date: 20151125
  Serious: Yes (Other)
  Sender: FDA-Public Use
  Company Number: KR-GILEAD-2015-0159014

PATIENT
  Age: 48 Year
  Sex: Male
  Weight: 55 kg

DRUGS (1)
  1. TENOFOVIR DISOPROXIL FUMARATE. [Suspect]
     Active Substance: TENOFOVIR DISOPROXIL FUMARATE
     Indication: HEPATITIS B
     Dosage: 300 MG, QD
     Route: 065
     Dates: start: 20140314

REACTIONS (1)
  - Hepatic fibrosis [Not Recovered/Not Resolved]

NARRATIVE: CASE EVENT DATE: 20150204
